FAERS Safety Report 16766183 (Version 1)
Quarter: 2019Q3

REPORT INFORMATION
  Report Type: Spontaneous
  Country: GB (occurrence: GB)
  Receive Date: 20190903
  Receipt Date: 20190903
  Transmission Date: 20191005
  Serious: Yes (Other)
  Sender: FDA-Public Use
  Company Number: GB-MYLANLABS-2019M1079091

PATIENT
  Age: 66 Year
  Sex: Male

DRUGS (3)
  1. HALF SECURON SR [Suspect]
     Active Substance: VERAPAMIL HYDROCHLORIDE
     Indication: ATRIAL FIBRILLATION
     Dosage: 120 MILLIGRAM, QD
     Route: 048
     Dates: start: 20190624, end: 20190627
  2. DABIGATRAN [Concomitant]
     Active Substance: DABIGATRAN
  3. BISOPROLOL [Concomitant]
     Active Substance: BISOPROLOL

REACTIONS (6)
  - Fall [Unknown]
  - Asthenia [Unknown]
  - Headache [Unknown]
  - Disorientation [Unknown]
  - Tinnitus [Unknown]
  - Balance disorder [Unknown]

NARRATIVE: CASE EVENT DATE: 2019
